FAERS Safety Report 6898115-1 (Version None)
Quarter: 2010Q3

REPORT INFORMATION
  Report Type: 
  Country: None (occurrence: None)
  Receive Date: 20100802
  Receipt Date: 20070911
  Transmission Date: 20110219
  Serious: Yes (Other)
  Sender: FDA-Public Use
  Company Number: US-PFIZER INC-2007076426

PATIENT
  Sex: Male
  Weight: 90.9 kg

DRUGS (9)
  1. LYRICA [Suspect]
     Indication: FIBROMYALGIA
     Dates: start: 20070706
  2. LYRICA [Suspect]
     Indication: NEURALGIA
  3. BUPROPION [Concomitant]
  4. METOPROLOL [Concomitant]
  5. MIRAPEX [Concomitant]
  6. TEMAZEPAM [Concomitant]
  7. SIMVASTATIN [Concomitant]
  8. TIMOPTIC [Concomitant]
  9. AMOXICILLIN [Concomitant]

REACTIONS (2)
  - HUNGER [None]
  - WEIGHT INCREASED [None]
